FAERS Safety Report 17729639 (Version 1)
Quarter: 2020Q2

REPORT INFORMATION
  Report Type: Spontaneous
  Country: FR (occurrence: FR)
  Receive Date: 20200430
  Receipt Date: 20200430
  Transmission Date: 20200714
  Serious: Yes (Life-Threatening, Hospitalization)
  Sender: FDA-Public Use
  Company Number: FR-CUMBERLAND-2020-FR-000008

PATIENT
  Age: 52 Year
  Sex: Male

DRUGS (4)
  1. AMOXICILLIN, CLAVULANIC ACID [Suspect]
     Active Substance: AMOXICILLIN\CLAVULANIC ACID
  2. CELECOXIB. [Suspect]
     Active Substance: CELECOXIB
  3. METHOTREXATE. [Suspect]
     Active Substance: METHOTREXATE
  4. INFLIXIMAB [Suspect]
     Active Substance: INFLIXIMAB

REACTIONS (12)
  - Lymphadenopathy [Recovered/Resolved]
  - Interstitial lung disease [Recovering/Resolving]
  - Drug reaction with eosinophilia and systemic symptoms [Recovering/Resolving]
  - Hepatocellular injury [Recovered/Resolved]
  - Epstein-Barr virus infection reactivation [Not Recovered/Not Resolved]
  - Bundle branch block left [Recovered/Resolved]
  - Cardiopulmonary failure [Recovered/Resolved]
  - Thrombocytopenia [Unknown]
  - Acute generalised exanthematous pustulosis [Recovered/Resolved]
  - Anaemia [Unknown]
  - C-reactive protein increased [Unknown]
  - Ejection fraction decreased [Recovered/Resolved]
